FAERS Safety Report 9157089 (Version 1)
Quarter: 2013Q1

REPORT INFORMATION
  Report Type: Spontaneous
  Country: US (occurrence: None)
  Receive Date: 20130212
  Receipt Date: 20130212
  Transmission Date: 20140127
  Serious: Yes (Hospitalization)
  Sender: FDA-Public Use
  Company Number: 12-07-2913

PATIENT
  Age: 75 Year
  Sex: Male
  Weight: 94.8 kg

DRUGS (5)
  1. IMIQUIMOD [Suspect]
     Indication: ACTINIC KERATOSIS
     Route: 061
     Dates: start: 20120917, end: 20121028
  2. STALOL [Concomitant]
  3. METFORMIN (METFORMIN) [Concomitant]
  4. ASPIRIN [Concomitant]
  5. TAMSULOSIN [Concomitant]

REACTIONS (3)
  - Dyspnoea [None]
  - Pain [None]
  - Atrial fibrillation [None]
